FAERS Safety Report 25049345 (Version 1)
Quarter: 2025Q1

REPORT INFORMATION
  Report Type: Spontaneous
  Country: US (occurrence: US)
  Receive Date: 20250307
  Receipt Date: 20250307
  Transmission Date: 20250409
  Serious: Yes (Death)
  Sender: ORPHAZYME
  Company Number: US-ZEVRA DENMARK A/S-ORP-000528

PATIENT
  Age: 15 Year
  Sex: Male

DRUGS (1)
  1. MIPLYFFA [Suspect]
     Active Substance: ARIMOCLOMOL CITRATE
     Indication: Product used for unknown indication
     Dosage: 62 MILLIGRAM, TID
     Route: 048

REACTIONS (1)
  - Death [Fatal]

NARRATIVE: CASE EVENT DATE: 20250214
